FAERS Safety Report 16452015 (Version 1)
Quarter: 2019Q2

REPORT INFORMATION
  Report Type: Spontaneous
  Country: US (occurrence: US)
  Receive Date: 20190619
  Receipt Date: 20190619
  Transmission Date: 20190711
  Serious: No
  Sender: FDA-Public Use
  Company Number: US-ROCHE-2171869

PATIENT
  Sex: Female

DRUGS (7)
  1. TYLENOL EXTRA STRENGTH [Concomitant]
     Active Substance: ACETAMINOPHEN
  2. GABAPENTIN. [Concomitant]
     Active Substance: GABAPENTIN
  3. LASIX [Concomitant]
     Active Substance: FUROSEMIDE
  4. METOPROLOL SUCCINATE. [Concomitant]
     Active Substance: METOPROLOL SUCCINATE
  5. ACTEMRA [Suspect]
     Active Substance: TOCILIZUMAB
     Indication: RHEUMATOID ARTHRITIS
     Route: 042
     Dates: start: 20180110
  6. FLORANEX [Concomitant]
     Active Substance: LACTOBACILLUS ACIDOPHILUS\LACTOBACILLUS DELBRUECKII SUBSP. BULGARICUS
  7. LOPERAMIDE [Concomitant]
     Active Substance: LOPERAMIDE

REACTIONS (1)
  - Fine motor skill dysfunction [Unknown]
